FAERS Safety Report 9449762 (Version 1)
Quarter: 2013Q3

REPORT INFORMATION
  Report Type: Spontaneous
  Country: US (occurrence: US)
  Receive Date: 20130809
  Receipt Date: 20130809
  Transmission Date: 20140515
  Serious: Yes (Hospitalization, Other)
  Sender: FDA-Public Use
  Company Number: US-BAYER-2013-095000

PATIENT
  Age: 20 Year
  Sex: Female
  Weight: 98.87 kg

DRUGS (10)
  1. YAZ [Suspect]
  2. PERCOCET [Concomitant]
  3. ALBUTEROL [Concomitant]
     Route: 045
  4. LEVAQUIN [Concomitant]
  5. CIPROFLOXACIN [Concomitant]
  6. INDOMETHACIN [Concomitant]
  7. NITROFURANTOIN [Concomitant]
  8. AZITHROMYCIN [Concomitant]
  9. MOTRIN [Concomitant]
  10. ZITHROMAX [Concomitant]

REACTIONS (2)
  - Pulmonary embolism [Recovering/Resolving]
  - Deep vein thrombosis [None]
